FAERS Safety Report 12725415 (Version 2)
Quarter: 2016Q4

REPORT INFORMATION
  Report Type: Spontaneous
  Country: US (occurrence: US)
  Receive Date: 20160908
  Receipt Date: 20161216
  Transmission Date: 20170207
  Serious: Yes (Hospitalization)
  Sender: FDA-Public Use
  Company Number: US-RELYPSA-RLY2016002123

PATIENT
  Age: 79 Year
  Sex: Female

DRUGS (22)
  1. NOVOLOG [Concomitant]
     Active Substance: INSULIN ASPART
  2. HUMULIN NOS [Concomitant]
     Active Substance: INSULIN HUMAN
  3. LORAZEPAM. [Concomitant]
     Active Substance: LORAZEPAM
  4. HYDROXYZINE HCL [Concomitant]
     Active Substance: HYDROXYZINE HYDROCHLORIDE
  5. VELTASSA [Suspect]
     Active Substance: PATIROMER
     Indication: HYPERKALAEMIA
     Dosage: 8.4 G, QD
     Route: 048
     Dates: start: 2016
  6. SEVELAMER CARBONATE. [Concomitant]
     Active Substance: SEVELAMER CARBONATE
  7. ALLOPURINOL. [Concomitant]
     Active Substance: ALLOPURINOL
  8. ZAROXOLYN [Concomitant]
     Active Substance: METOLAZONE
  9. PROTONIX                           /00661201/ [Concomitant]
     Active Substance: OMEPRAZOLE
  10. NOVOLIN [Concomitant]
     Active Substance: INSULIN HUMAN
  11. LEXAPRO [Concomitant]
     Active Substance: ESCITALOPRAM OXALATE
  12. COREG [Concomitant]
     Active Substance: CARVEDILOL
  13. ARANESP [Concomitant]
     Active Substance: DARBEPOETIN ALFA
  14. NEURONTIN [Concomitant]
     Active Substance: GABAPENTIN
  15. RENVELA [Concomitant]
     Active Substance: SEVELAMER CARBONATE
  16. SENSIPAR [Concomitant]
     Active Substance: CINACALCET HYDROCHLORIDE
  17. PHOSLO [Concomitant]
     Active Substance: CALCIUM ACETATE
  18. MIDODRINE HCL [Concomitant]
     Active Substance: MIDODRINE HYDROCHLORIDE
  19. CALCIUM ACETATE. [Concomitant]
     Active Substance: CALCIUM ACETATE
  20. ASACOL HD [Concomitant]
     Active Substance: MESALAMINE
  21. ZOCOR [Concomitant]
     Active Substance: SIMVASTATIN
  22. AMBIEN CR [Concomitant]
     Active Substance: ZOLPIDEM TARTRATE

REACTIONS (1)
  - Pneumonia [Not Recovered/Not Resolved]

NARRATIVE: CASE EVENT DATE: 201608
